FAERS Safety Report 12388790 (Version 1)
Quarter: 2016Q2

REPORT INFORMATION
  Report Type: Spontaneous
  Country: US (occurrence: US)
  Receive Date: 20160520
  Receipt Date: 20160520
  Transmission Date: 20160815
  Serious: No
  Sender: FDA-Public Use
  Company Number: US-BAYER-2016-097290

PATIENT
  Age: 47 Year
  Sex: Female
  Weight: 62.58 kg

DRUGS (3)
  1. MIRALAX [Suspect]
     Active Substance: POLYETHYLENE GLYCOL 3350
     Indication: ABDOMINAL DISTENSION
  2. MIRALAX [Suspect]
     Active Substance: POLYETHYLENE GLYCOL 3350
     Indication: FLATULENCE
     Dosage: 1 DF, QD
     Route: 048
     Dates: start: 201506
  3. MIRALAX [Suspect]
     Active Substance: POLYETHYLENE GLYCOL 3350
     Indication: CONSTIPATION

REACTIONS (4)
  - Product use issue [None]
  - Product use issue [None]
  - Circumstance or information capable of leading to medication error [None]
  - Drug ineffective [None]

NARRATIVE: CASE EVENT DATE: 2015
